FAERS Safety Report 25431865 (Version 1)
Quarter: 2025Q2

REPORT INFORMATION
  Report Type: Spontaneous
  Country: FR (occurrence: FR)
  Receive Date: 20250613
  Receipt Date: 20250613
  Transmission Date: 20250716
  Serious: Yes (Death, Other)
  Sender: B BRAUN
  Company Number: FR-B.Braun Medical Inc.-2178612

PATIENT
  Age: 40 Year
  Sex: Female

DRUGS (10)
  1. ACETAMINOPHEN [Suspect]
     Active Substance: ACETAMINOPHEN
  2. MORPHINE [Suspect]
     Active Substance: MORPHINE
  3. CANNABIDIOL [Suspect]
     Active Substance: CANNABIDIOL
  4. DRONABINOL [Suspect]
     Active Substance: DRONABINOL
  5. OXAZEPAM [Suspect]
     Active Substance: OXAZEPAM
  6. ZOPICLONE [Suspect]
     Active Substance: ZOPICLONE
  7. NORDAZEPAM [Suspect]
     Active Substance: NORDAZEPAM
  8. QUETIAPINE [Suspect]
     Active Substance: QUETIAPINE
  9. CYAMEMAZINE [Suspect]
     Active Substance: CYAMEMAZINE
  10. TRAMADOL [Suspect]
     Active Substance: TRAMADOL

REACTIONS (1)
  - Completed suicide [Fatal]
